FAERS Safety Report 25414252 (Version 1)
Quarter: 2025Q2

REPORT INFORMATION
  Report Type: Spontaneous
  Country: US (occurrence: None)
  Receive Date: 20250608
  Receipt Date: 20250608
  Transmission Date: 20250717
  Serious: Yes (Hospitalization)
  Sender: FDA-CTU
  Company Number: None

PATIENT
  Age: 82 Year
  Sex: Female
  Weight: 83.25 kg

DRUGS (13)
  1. BACLOFEN [Suspect]
     Active Substance: BACLOFEN
     Indication: Arthralgia
     Dosage: FREQUENCY : EVERY 8 HOURS;?
     Route: 048
     Dates: start: 20250605, end: 20250606
  2. ATORVASTATIN [Concomitant]
     Active Substance: ATORVASTATIN
  3. FARXIGA [Concomitant]
     Active Substance: DAPAGLIFLOZIN PROPANEDIOL
  4. GABAPENTIN [Concomitant]
     Active Substance: GABAPENTIN
  5. RAMIPRIL [Concomitant]
     Active Substance: RAMIPRIL
  6. Mounjarno [Concomitant]
  7. PANTOPRAZOLE [Concomitant]
     Active Substance: PANTOPRAZOLE
  8. SPIRONOLACTONE [Concomitant]
     Active Substance: SPIRONOLACTONE
  9. CETIRIZINE [Concomitant]
     Active Substance: CETIRIZINE HYDROCHLORIDE
  10. MELATONIN [Concomitant]
     Active Substance: MELATONIN
  11. VITAMIN D3 [Concomitant]
     Active Substance: CHOLECALCIFEROL
  12. B12 [Concomitant]
  13. CALCIUM [Concomitant]
     Active Substance: CALCIUM

REACTIONS (8)
  - Crying [None]
  - Conversion disorder [None]
  - Dyspnoea [None]
  - Confusional state [None]
  - Blood pressure increased [None]
  - Cerebrovascular accident [None]
  - Headache [None]
  - Nausea [None]

NARRATIVE: CASE EVENT DATE: 20250605
